FAERS Safety Report 24560840 (Version 2)
Quarter: 2024Q4

REPORT INFORMATION
  Report Type: Spontaneous
  Country: EG (occurrence: EG)
  Receive Date: 20241029
  Receipt Date: 20241104
  Transmission Date: 20250115
  Serious: Yes (Other)
  Sender: PFIZER
  Company Number: EG-PFIZER INC-PV202400139315

PATIENT
  Sex: Male
  Weight: 3.6 kg

DRUGS (4)
  1. UNASYN [Suspect]
     Active Substance: AMPICILLIN SODIUM\SULBACTAM SODIUM
     Indication: Neonatal respiratory distress
     Dosage: (STRENGHT 375 MG), 1X/DAY
     Route: 042
  2. UNASYN [Suspect]
     Active Substance: AMPICILLIN SODIUM\SULBACTAM SODIUM
     Indication: Congenital pneumonia
  3. AMIKIN [Suspect]
     Active Substance: AMIKACIN SULFATE
     Indication: Neonatal respiratory distress
     Dosage: UNK UNK, 1X/DAY
     Route: 042
  4. AMIKIN [Suspect]
     Active Substance: AMIKACIN SULFATE
     Indication: Congenital pneumonia

REACTIONS (1)
  - Thrombocytopenia neonatal [Not Recovered/Not Resolved]
